FAERS Safety Report 9192221 (Version 1)
Quarter: 2013Q1

REPORT INFORMATION
  Report Type: Spontaneous
  Country: US (occurrence: None)
  Receive Date: 20120703
  Receipt Date: 20120703
  Transmission Date: 20140127
  Serious: Yes (Other)
  Sender: FDA-Public Use
  Company Number: PHEH2012US006747

PATIENT
  Sex: Male

DRUGS (1)
  1. GILENYA (FTY)CAPSULE,0.5MG [Suspect]
     Indication: RELAPSING-REMITTING MULTIPLE SCLEROSIS
     Route: 048
     Dates: start: 20110806

REACTIONS (2)
  - Heart rate decreased [None]
  - Blood pressure fluctuation [None]
